FAERS Safety Report 5270988-8 (Version None)
Quarter: 2007Q1

REPORT INFORMATION
  Report Type: 
  Country: None (occurrence: None)
  Receive Date: 20070321
  Receipt Date: 20070315
  Transmission Date: 20070707
  Serious: Yes (Hospitalization)
  Sender: FDA-Public Use
  Company Number: FR-AVENTIS-200710414FR

PATIENT
  Age: 73 Year
  Sex: Male

DRUGS (11)
  1. KETEK [Suspect]
     Indication: BRONCHOPNEUMOPATHY
     Route: 048
     Dates: start: 20070108, end: 20070116
  2. NOVONORM [Suspect]
     Indication: DIABETES MELLITUS
     Route: 048
     Dates: start: 20060920, end: 20070116
  3. CELECTOL                           /00806301/ [Concomitant]
     Indication: MYOCARDIAL INFARCTION
     Route: 048
  4. TRIATEC                            /00885601/ [Concomitant]
     Indication: MYOCARDIAL INFARCTION
     Route: 048
  5. PLAVIX [Concomitant]
     Indication: MYOCARDIAL INFARCTION
     Route: 048
  6. EFFEXOR [Concomitant]
     Route: 048
  7. SERETIDE [Concomitant]
     Indication: BRONCHOPNEUMOPATHY
     Route: 055
  8. VENTOLINE                          /00139501/ [Concomitant]
     Indication: BRONCHOPNEUMOPATHY
     Route: 055
  9. PRAXILENE [Concomitant]
     Route: 048
  10. OMEXEL [Concomitant]
     Indication: BENIGN PROSTATIC HYPERPLASIA
     Route: 048
  11. TANAKAN                            /01003103/ [Concomitant]
     Route: 048

REACTIONS (14)
  - BLOOD BICARBONATE DECREASED [None]
  - BLOOD PH DECREASED [None]
  - BLOOD POTASSIUM INCREASED [None]
  - BODY TEMPERATURE INCREASED [None]
  - CEREBROVASCULAR ACCIDENT [None]
  - CONFUSIONAL STATE [None]
  - DRUG INTERACTION [None]
  - HYPOGLYCAEMIA [None]
  - LOSS OF CONSCIOUSNESS [None]
  - MALAISE [None]
  - MIOSIS [None]
  - OXYGEN SATURATION DECREASED [None]
  - PCO2 INCREASED [None]
  - PO2 DECREASED [None]
